FAERS Safety Report 12263700 (Version 3)
Quarter: 2016Q3

REPORT INFORMATION
  Report Type: Report from Study
  Country: BR (occurrence: BR)
  Receive Date: 20160413
  Receipt Date: 20160809
  Transmission Date: 20161109
  Serious: Yes (Hospitalization, Other)
  Sender: FDA-Public Use
  Company Number: PHHY2016BR048403

PATIENT
  Sex: Female
  Weight: 30 kg

DRUGS (1)
  1. EXJADE [Suspect]
     Active Substance: DEFERASIROX
     Indication: SICKLE CELL ANAEMIA
     Dosage: 500 MG (15 MG/KG), QD
     Route: 048

REACTIONS (8)
  - Malaise [Unknown]
  - Tremor [Unknown]
  - Renal impairment [Not Recovered/Not Resolved]
  - Asthenia [Unknown]
  - Dysstasia [Unknown]
  - Weight decreased [Unknown]
  - Gait disturbance [Unknown]
  - General physical health deterioration [Unknown]
